FAERS Safety Report 6442097-3 (Version None)
Quarter: 2009Q4

REPORT INFORMATION
  Report Type: 
  Country: None (occurrence: None)
  Receive Date: 20091116
  Receipt Date: 20091103
  Transmission Date: 20100525
  Serious: Yes (Other)
  Sender: FDA-Public Use
  Company Number: PHEH2009US08895

PATIENT
  Sex: Female
  Weight: 107.57 kg

DRUGS (13)
  1. RECLAST [Suspect]
     Indication: OSTEOPOROSIS
     Dosage: 5 MG/100 ML, ONCE/SINGLE
     Route: 042
     Dates: start: 20090521
  2. PREVACID [Concomitant]
     Dosage: 30 MG, QD
     Route: 048
  3. PRINIVIL [Concomitant]
     Dosage: 40 MG, BID
     Route: 048
  4. HYZAAR [Concomitant]
     Dosage: 25 MG/100 MG, QD
     Route: 048
  5. PLAVIX [Concomitant]
     Dosage: 75 MG, QD
     Route: 048
  6. FISH OIL [Concomitant]
     Dosage: TWO TABS, DAILY
     Route: 048
  7. CALCIUM WITH VITAMIN D [Concomitant]
     Dosage: 600MG/200MG, BID WITH MEALS
     Route: 048
  8. VITAMIN D [Concomitant]
     Dosage: 50000 IU, ONCE A WEEK
  9. ALLEGRA [Concomitant]
     Dosage: 180 MG, QD PRN
     Route: 048
  10. DEMADEX [Concomitant]
     Dosage: 20 MG, QD PRN
     Route: 048
  11. SKELAXIN [Concomitant]
     Dosage: 800 MG, Q8H PRN
     Route: 048
  12. POTASSIUM CHLORIDE [Concomitant]
     Dosage: 10 MEQ, QD
     Route: 048
  13. FLONASE [Concomitant]
     Dosage: 0.05 MG/INH SPRAY, QD

REACTIONS (5)
  - GAIT DISTURBANCE [None]
  - HYPOKINESIA [None]
  - MUSCULAR WEAKNESS [None]
  - MUSCULOSKELETAL STIFFNESS [None]
  - RHABDOMYOLYSIS [None]
